FAERS Safety Report 20054291 (Version 1)
Quarter: 2021Q4

REPORT INFORMATION
  Report Type: Spontaneous
  Country: US (occurrence: None)
  Receive Date: 20211110
  Receipt Date: 20211110
  Transmission Date: 20220304
  Serious: No
  Sender: FDA-Public Use
  Company Number: 2021A784805

PATIENT
  Weight: 106.6 kg

DRUGS (2)
  1. BYDUREON BCISE [Suspect]
     Active Substance: EXENATIDE
     Route: 058
     Dates: start: 20210909
  2. BYDUREON [Suspect]
     Active Substance: EXENATIDE
     Route: 065

REACTIONS (7)
  - Hypersensitivity [Unknown]
  - Injection site mass [Unknown]
  - Injection site pain [Unknown]
  - Sinus disorder [Unknown]
  - Vertigo [Unknown]
  - Dizziness [Unknown]
  - Nasal discomfort [Unknown]
